FAERS Safety Report 12987836 (Version 5)
Quarter: 2017Q1

REPORT INFORMATION
  Report Type: Spontaneous
  Country: JP (occurrence: JP)
  Receive Date: 20161130
  Receipt Date: 20170118
  Transmission Date: 20170428
  Serious: Yes (Hospitalization)
  Sender: FDA-Public Use
  Company Number: PHJP2016JP034140

PATIENT
  Age: 23 Year
  Sex: Male
  Weight: 47 kg

DRUGS (1)
  1. GILENYA [Suspect]
     Active Substance: FINGOLIMOD HYDROCHLORIDE
     Indication: MULTIPLE SCLEROSIS
     Dosage: 0.5 MG, QD
     Route: 048
     Dates: start: 201609, end: 20161121

REACTIONS (5)
  - Altered state of consciousness [Unknown]
  - Diplegia [Unknown]
  - Neuromyelitis optica spectrum disorder [Recovered/Resolved with Sequelae]
  - Cerebral atrophy [Unknown]
  - Abasia [Recovered/Resolved]
